FAERS Safety Report 8946911 (Version 2)
Quarter: 2012Q4

REPORT INFORMATION
  Report Type: 
  Country: JP (occurrence: JP)
  Receive Date: 20121205
  Receipt Date: 20121210
  Transmission Date: 20130627
  Serious: Yes (Hospitalization)
  Sender: FDA-Public Use
  Company Number: JP-GLAXOSMITHKLINE-B0849653A

PATIENT
  Age: 68 Year
  Sex: Female
  Weight: 88 kg

DRUGS (3)
  1. NOGITECAN HYDROCHLORIDE [Suspect]
     Indication: OVARIAN CANCER RECURRENT
     Dosage: 1.25MGM2 per day
     Route: 042
     Dates: start: 20111212, end: 20111216
  2. NOGITECAN HYDROCHLORIDE [Suspect]
     Indication: OVARIAN CANCER RECURRENT
     Dosage: 1.25MGM2 per day
     Route: 042
     Dates: start: 20120123, end: 20120127
  3. DECADRON [Concomitant]
     Dosage: 8.25MG per day
     Route: 042
     Dates: start: 20111212

REACTIONS (7)
  - Ascites [Recovering/Resolving]
  - White blood cell count decreased [Recovering/Resolving]
  - Neutrophil count decreased [Recovering/Resolving]
  - Platelet count decreased [Recovered/Resolved]
  - Constipation [Recovering/Resolving]
  - Red blood cell count decreased [Recovered/Resolved]
  - Anaemia [Recovering/Resolving]
